FAERS Safety Report 18650032 (Version 1)
Quarter: 2020Q4

REPORT INFORMATION
  Report Type: Spontaneous
  Country: IT (occurrence: IT)
  Receive Date: 20201222
  Receipt Date: 20201222
  Transmission Date: 20210114
  Serious: Yes (Hospitalization)
  Sender: FDA-Public Use
  Company Number: IT-MYLANLABS-2020M1102804

PATIENT
  Age: 73 Year
  Sex: Female

DRUGS (4)
  1. VYTORIN [Concomitant]
     Active Substance: EZETIMIBE\SIMVASTATIN
     Dosage: UNK
  2. ACETYLSALICYLIC ACID [Concomitant]
     Active Substance: ASPIRIN
     Indication: THROMBOSIS PROPHYLAXIS
     Dosage: UNK
     Route: 048
  3. TRIAZOLAM. [Suspect]
     Active Substance: TRIAZOLAM
     Indication: DEPRESSION
     Dosage: 10 GTT DROPS, QD
     Route: 048
  4. XANAX [Concomitant]
     Active Substance: ALPRAZOLAM
     Indication: DEPRESSION
     Dosage: UNK

REACTIONS (3)
  - Speech disorder [Recovered/Resolved]
  - Drug abuse [Recovered/Resolved]
  - Fall [Recovered/Resolved]

NARRATIVE: CASE EVENT DATE: 20201024
